FAERS Safety Report 15287617 (Version 1)
Quarter: 2018Q3

REPORT INFORMATION
  Report Type: Spontaneous
  Country: FR (occurrence: FR)
  Receive Date: 20180817
  Receipt Date: 20180817
  Transmission Date: 20181010
  Serious: Yes (Hospitalization)
  Sender: FDA-Public Use
  Company Number: FR-TEVA-2018-FR-942717

PATIENT
  Age: 50 Year
  Sex: Female

DRUGS (1)
  1. PREDNISOLONE. [Suspect]
     Active Substance: PREDNISOLONE
     Indication: INTERVERTEBRAL DISC PROTRUSION
     Dates: start: 20180703

REACTIONS (1)
  - Face oedema [Recovered/Resolved]

NARRATIVE: CASE EVENT DATE: 20180704
